FAERS Safety Report 10395895 (Version 4)
Quarter: 2014Q3

REPORT INFORMATION
  Report Type: Report from Study
  Country: US (occurrence: US)
  Receive Date: 20140820
  Receipt Date: 20140929
  Transmission Date: 20150326
  Serious: Yes (Hospitalization)
  Sender: FDA-Public Use
  Company Number: US-PFIZER INC-2014227097

PATIENT
  Age: 63 Year
  Sex: Male
  Weight: 80.64 kg

DRUGS (38)
  1. FLUOROURACIL. [Suspect]
     Active Substance: FLUOROURACIL
     Dosage: 621 MG, CYCLIC, EVERY 2 WEEKS
     Route: 040
     Dates: start: 20140623, end: 20140623
  2. FLUOROURACIL. [Suspect]
     Active Substance: FLUOROURACIL
     Dosage: 621 MG, CYCLIC, EVERY 2 WEEKS
     Route: 040
     Dates: start: 20140707, end: 20140707
  3. FLUOROURACIL. [Suspect]
     Active Substance: FLUOROURACIL
     Dosage: 621 MG, CYCLIC, EVERY 2 WEEKS
     Route: 040
     Dates: start: 20140721, end: 20140721
  4. OXALIPLATIN. [Suspect]
     Active Substance: OXALIPLATIN
     Dosage: 165 MG, CYCLIC, EVERY 2 WEEKS
     Dates: start: 20140721, end: 20140721
  5. NOVOLOG [Concomitant]
     Active Substance: INSULIN ASPART
     Dosage: 100 IU/ML
  6. IRINOTECAN HCL [Suspect]
     Active Substance: IRINOTECAN HYDROCHLORIDE
     Indication: ADENOCARCINOMA PANCREAS
     Dosage: 291 MG, CYCLIC, EVERY 2 WEEKS
     Route: 042
     Dates: start: 20140602, end: 20140602
  7. IRINOTECAN HCL [Suspect]
     Active Substance: IRINOTECAN HYDROCHLORIDE
     Dosage: 291 MG, CYCLIC, EVERY 2 WEEKS
     Route: 042
     Dates: start: 20140623, end: 20140623
  8. FLUOROURACIL. [Suspect]
     Active Substance: FLUOROURACIL
     Dosage: 4656 MG, CYCLIC, EVERY 2 WEEKS
     Route: 042
     Dates: start: 20140623, end: 20140623
  9. FLUOROURACIL. [Suspect]
     Active Substance: FLUOROURACIL
     Dosage: 4656 MG, CYCLIC, EVERY 2 WEEKS
     Route: 042
     Dates: start: 20140721, end: 20140721
  10. FLUOROURACIL. [Suspect]
     Active Substance: FLUOROURACIL
     Indication: ADENOCARCINOMA PANCREAS
     Dosage: 621 MG, CYCLIC, EVERY 2 WEEKS
     Route: 040
     Dates: start: 20140602, end: 20140602
  11. FLUOROURACIL. [Suspect]
     Active Substance: FLUOROURACIL
     Dosage: 621 MG, CYCLIC, EVERY 2 WEEKS
     Route: 040
     Dates: start: 20140811, end: 20140811
  12. FLUOROURACIL. [Suspect]
     Active Substance: FLUOROURACIL
     Dosage: 4656 MG, CYCLIC, EVERY 2 WEEKS
     Route: 042
     Dates: start: 20140707, end: 20140707
  13. OXALIPLATIN. [Suspect]
     Active Substance: OXALIPLATIN
     Dosage: 165 MG, CYCLIC, EVERY 2 WEEKS
     Dates: start: 20140707, end: 20140707
  14. PROCHLORPERAZINE MALEATE. [Concomitant]
     Active Substance: PROCHLORPERAZINE MALEATE
     Dosage: 10 MG, UNK
  15. IRINOTECAN HCL [Suspect]
     Active Substance: IRINOTECAN HYDROCHLORIDE
     Dosage: 291 MG, CYCLIC, EVERY 2 WEEKS
     Route: 042
     Dates: start: 20140811, end: 20140811
  16. LEUCOVORIN [Suspect]
     Active Substance: LEUCOVORIN
     Indication: ADENOCARCINOMA PANCREAS
     Dosage: 776 MG, CYCLIC, EVERY 2 WEEKS
     Dates: start: 20140602, end: 20140602
  17. LEUCOVORIN [Suspect]
     Active Substance: LEUCOVORIN
     Dosage: 776 MG, CYCLIC, EVERY 2 WEEKS
     Dates: start: 20140623, end: 20140623
  18. LEUCOVORIN [Suspect]
     Active Substance: LEUCOVORIN
     Dosage: 776 MG, CYCLIC, EVERY 2 WEEKS
     Dates: start: 20140721, end: 20140721
  19. FLUOROURACIL. [Suspect]
     Active Substance: FLUOROURACIL
     Dosage: 4656 MG, CYCLIC, EVERY 2 WEEKS
     Route: 042
     Dates: start: 20140811, end: 20140811
  20. LIDOCAINE HYDROCHL. W/PRILOCAINE HYDROCHL. [Concomitant]
     Dosage: 2.5 - 2.5 %
  21. ONDANSETRON HYDROCHLORIDE. [Concomitant]
     Active Substance: ONDANSETRON HYDROCHLORIDE
     Dosage: 4 MG, UNK
  22. LEUCOVORIN [Suspect]
     Active Substance: LEUCOVORIN
     Dosage: 776 MG, CYCLIC, EVERY 2 WEEKS
     Dates: start: 20140811, end: 20140811
  23. INSULIN [Concomitant]
     Active Substance: INSULIN NOS
     Dosage: UNK
  24. DIAZEPAM. [Concomitant]
     Active Substance: DIAZEPAM
     Dosage: UNK
  25. IRINOTECAN HCL [Suspect]
     Active Substance: IRINOTECAN HYDROCHLORIDE
     Dosage: 291 MG, CYCLIC, EVERY 2 WEEKS
     Route: 042
     Dates: start: 20140721, end: 20140721
  26. OXALIPLATIN. [Suspect]
     Active Substance: OXALIPLATIN
     Indication: ADENOCARCINOMA PANCREAS
     Dosage: 165 MG, CYCLIC, EVERY 2 WEEKS
     Dates: start: 20140602, end: 20140602
  27. OXALIPLATIN. [Suspect]
     Active Substance: OXALIPLATIN
     Dosage: 165 MG, CYCLIC, EVERY 2 WEEKS
     Dates: start: 20140811, end: 20140811
  28. GLUCAGON. [Concomitant]
     Active Substance: GLUCAGON
     Dosage: 1 MG, AS NEEDED
  29. HUMULIN N KWIKPEN [Concomitant]
     Dosage: 100 IU/ML
  30. FLUOROURACIL. [Suspect]
     Active Substance: FLUOROURACIL
     Dosage: 4656 MG, CYCLIC, EVERY 2 WEEKS
     Route: 042
     Dates: start: 20140602, end: 20140602
  31. OXALIPLATIN. [Suspect]
     Active Substance: OXALIPLATIN
     Dosage: 165 MG, CYCLIC, EVERY 2 WEEKS
     Dates: start: 20140623, end: 20140623
  32. AMLODIPINE BESYLATE. [Concomitant]
     Active Substance: AMLODIPINE BESYLATE
     Dosage: 10 MG, UNK
  33. HYDROCODONE BIT/APAP [Concomitant]
     Active Substance: ACETAMINOPHEN\HYDROCODONE BITARTRATE
     Dosage: 5-325 MG
  34. LANTUS SOLOSTAR [Concomitant]
     Active Substance: INSULIN GLARGINE
     Dosage: 100 IU/ML
  35. VITAMIN D [Concomitant]
     Active Substance: CHOLECALCIFEROL
     Dosage: 50000 Q WEEK
  36. PF-04136309 [Suspect]
     Active Substance: INVESTIGATIONAL PRODUCT
     Indication: ADENOCARCINOMA PANCREAS
     Dosage: 500 MG, 2X/DAY
     Route: 048
     Dates: start: 20140602, end: 20140813
  37. IRINOTECAN HCL [Suspect]
     Active Substance: IRINOTECAN HYDROCHLORIDE
     Dosage: 291 MG, CYCLIC, EVERY 2 WEEKS
     Route: 042
     Dates: start: 20140707, end: 20140707
  38. LEUCOVORIN [Suspect]
     Active Substance: LEUCOVORIN
     Dosage: 776 MG, CYCLIC, EVERY 2 WEEKS
     Dates: start: 20140707, end: 20140707

REACTIONS (1)
  - Cholangitis [Recovered/Resolved]

NARRATIVE: CASE EVENT DATE: 20140813
